FAERS Safety Report 7008668-0 (Version None)
Quarter: 2010Q3

REPORT INFORMATION
  Report Type: 
  Country: None (occurrence: None)
  Receive Date: 20100922
  Receipt Date: 20100914
  Transmission Date: 20110219
  Serious: Yes (Hospitalization)
  Sender: FDA-Public Use
  Company Number: US-AMGEN-KDL438258

PATIENT
  Sex: Female

DRUGS (5)
  1. ENBREL [Suspect]
     Indication: PSORIASIS
     Dates: start: 20060101
  2. SYNTHROID [Concomitant]
  3. ESTRACE [Concomitant]
  4. COZAAR [Concomitant]
  5. CRESTOR [Concomitant]

REACTIONS (1)
  - JOINT DESTRUCTION [None]
